FAERS Safety Report 4372779-9 (Version None)
Quarter: 2004Q2

REPORT INFORMATION
  Report Type: 
  Country: None (occurrence: None)
  Receive Date: 20040526
  Receipt Date: 20040511
  Transmission Date: 20050107
  Serious: Yes (Death)
  Sender: FDA-Public Use
  Company Number: 197894

PATIENT
  Age: 74 Year
  Sex: Female
  Weight: 45.3597 kg

DRUGS (6)
  1. AVONEX [Suspect]
     Indication: MULTIPLE SCLEROSIS
  2. AVONEX [Suspect]
     Indication: MULTIPLE SCLEROSIS
     Dates: end: 20040401
  3. PAIN MEDICATION (NOS) [Concomitant]
  4. ANXIETY MEDICATION (NOS) [Concomitant]
  5. COUMADIN [Concomitant]
  6. MEDICATION (NOS) [Concomitant]

REACTIONS (2)
  - ATHEROSCLEROSIS [None]
  - CARDIO-RESPIRATORY ARREST [None]
